FAERS Safety Report 9419199 (Version 1)
Quarter: 2013Q3

REPORT INFORMATION
  Report Type: Spontaneous
  Country: US (occurrence: None)
  Receive Date: 20130722
  Receipt Date: 20130722
  Transmission Date: 20140515
  Serious: Yes (Hospitalization)
  Sender: FDA-Public Use
  Company Number: None

PATIENT
  Age: 36 Year
  Sex: Male
  Weight: 90.7 kg

DRUGS (2)
  1. CLOZARIL [Suspect]
     Indication: SCHIZOPHRENIA
     Dosage: 700 MG HS PO?JANUARY TO JUNE
     Route: 048
  2. LATUDA 40 MG SUNOVION [Suspect]
     Indication: SCHIZOPHRENIA
     Dosage: 40 MG QD PO ?JANUARY TO JUNE
     Route: 048

REACTIONS (5)
  - Neuroleptic malignant syndrome [None]
  - Pyrexia [None]
  - Muscle rigidity [None]
  - Blood sodium decreased [None]
  - Mental status changes [None]
